FAERS Safety Report 4274118-0 (Version None)
Quarter: 2004Q1

REPORT INFORMATION
  Report Type: 
  Country: None (occurrence: None)
  Receive Date: 20040120
  Receipt Date: 20040116
  Transmission Date: 20041129
  Serious: Yes (Disabling)
  Sender: FDA-Public Use
  Company Number: FR-GLAXOSMITHKLINE-B0319931A

PATIENT
  Age: 44 Year
  Sex: Female
  Weight: 83 kg

DRUGS (1)
  1. IMIGRANE [Suspect]
     Indication: MIGRAINE
     Dosage: 20MG PER DAY
     Route: 045
     Dates: start: 20031223, end: 20031223

REACTIONS (1)
  - AMAUROSIS FUGAX [None]
